FAERS Safety Report 9057811 (Version 1)
Quarter: 2013Q1

REPORT INFORMATION
  Report Type: Spontaneous
  Country: US (occurrence: US)
  Receive Date: 20130204
  Receipt Date: 20130204
  Transmission Date: 20140127
  Serious: No
  Sender: FDA-Public Use
  Company Number: US-BAYER-2013-009436

PATIENT
  Age: 93 Year
  Sex: Male
  Weight: 54.42 kg

DRUGS (10)
  1. CITRACAL [Suspect]
     Dosage: 1 DF, QD
     Route: 048
     Dates: start: 201301, end: 20130109
  2. BAYER ASPIRIN REGIMEN ADULT LOW STRENGTH [Concomitant]
  3. OMEPRAZOLE [Concomitant]
  4. SOTALOL [Concomitant]
  5. PLAVIX [Concomitant]
  6. HYDROCHLOIFIDAZED 50 MG [Concomitant]
  7. PRESERVISION EYE VITAMIN AND MINERAL SUPPL. [Concomitant]
  8. SLO-NIACIN [Concomitant]
  9. SIMVASTATIN [Concomitant]
  10. CARVEDILOL [Concomitant]

REACTIONS (1)
  - Pruritus generalised [None]
